FAERS Safety Report 9065556 (Version 1)
Quarter: 2013Q1

REPORT INFORMATION
  Report Type: Report from Study
  Country: US (occurrence: US)
  Receive Date: 20130130
  Receipt Date: 20130130
  Transmission Date: 20140127
  Serious: No
  Sender: FDA-Public Use
  Company Number: US-ABBOTT-12P-163-0976073-00

PATIENT
  Age: 48 Year
  Sex: Male

DRUGS (8)
  1. HUMIRA [Suspect]
     Indication: CROHN^S DISEASE
     Dates: start: 20120720
  2. METOPROLOL [Concomitant]
     Indication: HEART RATE INCREASED
  3. BUSPIRONE [Concomitant]
     Indication: DEPRESSION
  4. AMITRIPTYLINE [Concomitant]
     Indication: DEPRESSION
  5. ACIPHEX [Concomitant]
     Indication: GASTROOESOPHAGEAL REFLUX DISEASE
  6. TRILIPIX [Concomitant]
     Indication: BLOOD CHOLESTEROL INCREASED
  7. SYNTHROID [Concomitant]
     Indication: PRODUCT USED FOR UNKNOWN INDICATION
  8. GLIPZIDE [Concomitant]
     Indication: PRODUCT USED FOR UNKNOWN INDICATION

REACTIONS (6)
  - Fatigue [Not Recovered/Not Resolved]
  - Burning sensation [Not Recovered/Not Resolved]
  - Influenza [Not Recovered/Not Resolved]
  - Skin lesion [Not Recovered/Not Resolved]
  - Skin lesion [Not Recovered/Not Resolved]
  - Skin lesion [Not Recovered/Not Resolved]
